FAERS Safety Report 9791317 (Version 1)
Quarter: 2014Q1

REPORT INFORMATION
  Report Type: Report from Study
  Country: US (occurrence: US)
  Receive Date: 20140101
  Receipt Date: 20140101
  Transmission Date: 20141002
  Serious: Yes (Other)
  Sender: FDA-Public Use
  Company Number: US-ROCHE-1323164

PATIENT
  Sex: Female
  Weight: 41 kg

DRUGS (1)
  1. NUTROPIN AQ [Suspect]
     Indication: BODY HEIGHT BELOW NORMAL
     Dosage: CONCENTRATION : 20 MG/2ML.
     Route: 058
     Dates: start: 20130510

REACTIONS (3)
  - Tendon injury [Unknown]
  - Injection site bruising [Unknown]
  - Metrorrhagia [Unknown]
